FAERS Safety Report 6736171-1 (Version None)
Quarter: 2010Q2

REPORT INFORMATION
  Report Type: 
  Country: None (occurrence: None)
  Receive Date: 20100521
  Receipt Date: 20100513
  Transmission Date: 20101027
  Serious: Yes (Other)
  Sender: FDA-Public Use
  Company Number: US-JNJFOC-20100505791

PATIENT

DRUGS (4)
  1. CONCENTRATED MOTRIN INFANTS' DYE-FREE [Suspect]
     Route: 048
  2. CONCENTRATED MOTRIN INFANTS' DYE-FREE [Suspect]
     Indication: DRUG USE FOR UNKNOWN INDICATION
     Route: 048
  3. CHILDREN'S TYLENOL [Suspect]
     Route: 065
  4. CHILDREN'S TYLENOL [Suspect]
     Indication: DRUG USE FOR UNKNOWN INDICATION
     Route: 065

REACTIONS (2)
  - CONVULSION [None]
  - PRODUCT QUALITY ISSUE [None]
